FAERS Safety Report 14596244 (Version 2)
Quarter: 2018Q1

REPORT INFORMATION
  Report Type: Spontaneous
  Country: US (occurrence: US)
  Receive Date: 20180303
  Receipt Date: 20180308
  Transmission Date: 20180509
  Serious: Yes (Other)
  Sender: FDA-Public Use
  Company Number: US-TEVA-2018-US-864835

PATIENT
  Age: 14 Year
  Sex: Male

DRUGS (3)
  1. CLARAVIS [Suspect]
     Active Substance: ISOTRETINOIN
     Dosage: DAILY
     Route: 065
  2. CLARAVIS [Suspect]
     Active Substance: ISOTRETINOIN
     Indication: ACNE CYSTIC
     Route: 065
     Dates: start: 201709
  3. CLARAVIS [Suspect]
     Active Substance: ISOTRETINOIN
     Dosage: DAILY
     Route: 065
     Dates: start: 201712

REACTIONS (9)
  - Cough [Unknown]
  - Product use in unapproved indication [Unknown]
  - Weight decreased [Unknown]
  - Tinnitus [Unknown]
  - Abdominal pain [Unknown]
  - Pyrexia [Unknown]
  - Fatigue [Unknown]
  - Decreased appetite [Unknown]
  - Asthenia [Unknown]

NARRATIVE: CASE EVENT DATE: 201712
